FAERS Safety Report 20059319 (Version 1)
Quarter: 2021Q4

REPORT INFORMATION
  Report Type: Spontaneous
  Country: US (occurrence: US)
  Receive Date: 20211111
  Receipt Date: 20211111
  Transmission Date: 20220303
  Serious: Yes (Death, Life-Threatening)
  Sender: FDA-Public Use
  Company Number: US-MORPHOSYS US-2021-MOR001378-US

PATIENT
  Age: 77 Year
  Sex: Female

DRUGS (2)
  1. MONJUVI [Suspect]
     Active Substance: TAFASITAMAB-CXIX
     Indication: Diffuse large B-cell lymphoma
     Dosage: 1176 MILLIGRAM  DOSE 1 (C1D1)AND DOSE 2 (C1D4)
     Route: 042
     Dates: start: 20211029, end: 20211101
  2. LENALIDOMIDE [Concomitant]
     Active Substance: LENALIDOMIDE
     Indication: B-cell lymphoma
     Dosage: 25 MILLIGRAM DAILY
     Route: 048
     Dates: start: 20211029

REACTIONS (4)
  - Cardiac arrest [Fatal]
  - Hypoxia [Unknown]
  - Dyspnoea [Unknown]
  - Asthenia [Unknown]

NARRATIVE: CASE EVENT DATE: 20211101
